FAERS Safety Report 5475858-8 (Version None)
Quarter: 2007Q3

REPORT INFORMATION
  Report Type: 
  Country: None (occurrence: None)
  Receive Date: 20070927
  Receipt Date: 20070430
  Transmission Date: 20080115
  Serious: Yes (Hospitalization)
  Sender: FDA-Public Use
  Company Number: US-CVT-061210

PATIENT
  Age: 65 Year
  Sex: Male

DRUGS (9)
  1. RANEXA [Suspect]
     Indication: ANGINA PECTORIS
     Dosage: 500 MG, BID, ORAL
     Route: 048
     Dates: start: 20060501, end: 20060515
  2. ISOSORBIDE MONONITRATE [Concomitant]
  3. METOPROLOL TARTRATE [Concomitant]
  4. LOTREL [Concomitant]
  5. LIPITOR [Concomitant]
  6. ASPIRIN [Concomitant]
  7. ZETIA [Concomitant]
  8. PLAVIX [Concomitant]
  9. NITROGLYCERIN [Concomitant]

REACTIONS (1)
  - ANGINA UNSTABLE [None]
